FAERS Safety Report 23859447 (Version 3)
Quarter: 2024Q3

REPORT INFORMATION
  Report Type: Report from Study
  Country: US (occurrence: US)
  Receive Date: 20240515
  Receipt Date: 20240727
  Transmission Date: 20241016
  Serious: Yes (Congenital Anomaly, Other)
  Sender: DR REDDYS
  Company Number: US-DRL-USA-CLI/USA/24/0007036

PATIENT
  Age: 34 Week
  Sex: Male
  Weight: 2.02 kg

DRUGS (6)
  1. DARUNAVIR [Suspect]
     Active Substance: DARUNAVIR
     Indication: Product used for unknown indication
     Route: 064
  2. DARUNAVIR [Suspect]
     Active Substance: DARUNAVIR
     Route: 064
  3. RITONAVIR [Suspect]
     Active Substance: RITONAVIR
     Indication: Product used for unknown indication
     Route: 064
  4. TENOFOVIR DISOPROXIL FUMARATE [Suspect]
     Active Substance: TENOFOVIR DISOPROXIL FUMARATE
     Indication: Product used for unknown indication
     Route: 064
  5. DOLUTEGRAVIR [Suspect]
     Active Substance: DOLUTEGRAVIR
     Indication: Product used for unknown indication
     Route: 064
  6. FOLATE SODIUM [Suspect]
     Active Substance: FOLATE SODIUM
     Indication: Product used for unknown indication
     Route: 064

REACTIONS (4)
  - Scrotal cyst [Unknown]
  - Peritoneal cyst [Unknown]
  - Foetal exposure during pregnancy [Unknown]
  - Premature baby [Unknown]
